FAERS Safety Report 10234615 (Version 1)
Quarter: 2014Q2

REPORT INFORMATION
  Report Type: Spontaneous
  Country: ES (occurrence: ES)
  Receive Date: 20140613
  Receipt Date: 20140613
  Transmission Date: 20141212
  Serious: Yes (Other)
  Sender: FDA-Public Use
  Company Number: ES-009507513-1406ESP004212

PATIENT
  Age: 64 Year
  Sex: Male

DRUGS (3)
  1. PEGINTRON [Suspect]
     Indication: HEPATITIS C
     Dosage: 0.5-1 MCG/KG/WEEK
     Route: 058
  2. REBETOL [Suspect]
     Indication: HEPATITIS C
     Dosage: 200 MG/ 24-48 H
     Route: 048
  3. VICTRELIS [Suspect]
     Indication: HEPATITIS C
     Dosage: 800 MG, Q8H
     Route: 048

REACTIONS (4)
  - Haemoglobin decreased [Unknown]
  - Platelet count decreased [Unknown]
  - Neutrophil count decreased [Unknown]
  - Inappropriate schedule of drug administration [Unknown]
